FAERS Safety Report 5234538-4 (Version None)
Quarter: 2007Q1

REPORT INFORMATION
  Report Type: 
  Country: None (occurrence: None)
  Receive Date: 20070209
  Receipt Date: 20070202
  Transmission Date: 20070707
  Serious: Yes (Death)
  Sender: FDA-Public Use
  Company Number: US-ELI_LILLY_AND_COMPANY-US200701005663

PATIENT
  Age: 50 Year
  Sex: Female
  Weight: 69.841 kg

DRUGS (3)
  1. STRATTERA [Suspect]
     Indication: DEPRESSION
     Dosage: 40 MG, 2/D
     Route: 048
     Dates: start: 20050830
  2. WELLBUTRIN SR [Concomitant]
     Dosage: 200 MG, 2/D
     Route: 048
  3. NORTRIPTYLINE HCL [Concomitant]
     Dosage: 150 MG, EACH EVENING

REACTIONS (2)
  - DRUG TOXICITY [None]
  - GALLBLADDER DISORDER [None]
